FAERS Safety Report 14635568 (Version 1)
Quarter: 2018Q1

REPORT INFORMATION
  Report Type: Spontaneous
  Country: DE (occurrence: DE)
  Receive Date: 20180314
  Receipt Date: 20180314
  Transmission Date: 20180509
  Serious: Yes (Other)
  Sender: FDA-Public Use
  Company Number: DE-DEXPHARM-20180183

PATIENT
  Sex: Female
  Weight: 55 kg

DRUGS (4)
  1. VOLTAREN FORTE GEL (DICLOFENAC) [Interacting]
     Active Substance: DICLOFENAC
     Indication: BACK PAIN
     Route: 065
  2. ASPIRIN. [Suspect]
     Active Substance: ASPIRIN
     Indication: PRODUCT USED FOR UNKNOWN INDICATION
     Dosage: 100 MG, UNK
     Route: 065
  3. LETROZOLE. [Interacting]
     Active Substance: LETROZOLE
     Indication: BREAST CANCER
     Dosage: 100 MG, UNK
     Route: 065
  4. VOLTAREN [Interacting]
     Active Substance: DICLOFENAC SODIUM
     Indication: BACK PAIN
     Dosage: 100 MG, UNK
     Route: 048

REACTIONS (7)
  - Drug ineffective [Unknown]
  - Tachycardia [Unknown]
  - Tachyarrhythmia [Unknown]
  - Atrial fibrillation [None]
  - Blood pressure systolic increased [Unknown]
  - Drug interaction [Unknown]
  - Restlessness [Unknown]
